FAERS Safety Report 26146447 (Version 1)
Quarter: 2025Q4

REPORT INFORMATION
  Report Type: Spontaneous
  Country: CA (occurrence: CA)
  Receive Date: 20251211
  Receipt Date: 20251211
  Transmission Date: 20260117
  Serious: Yes (Other)
  Sender: Haleon PLC
  Company Number: CA-HALEON-2278273

PATIENT
  Age: 53 Year
  Sex: Male

DRUGS (149)
  1. VOLTAREN [Suspect]
     Active Substance: DICLOFENAC SODIUM
     Indication: Product used for unknown indication
     Dosage: ROUTE: UNKNOWN
  2. VOLTAREN [Suspect]
     Active Substance: DICLOFENAC SODIUM
     Indication: Migraine
     Dosage: ROUTE: UNKNOWN
  3. ADVIL [Suspect]
     Active Substance: IBUPROFEN
     Indication: Product used for unknown indication
     Dosage: ROUTE: UNKNOWN
  4. NEXIUM [Suspect]
     Active Substance: ESOMEPRAZOLE MAGNESIUM
     Indication: Product used for unknown indication
     Dosage: DOSE FORM: NOT SPECIFIED, ROUTE: OTHER
  5. NEXIUM [Suspect]
     Active Substance: ESOMEPRAZOLE MAGNESIUM
     Indication: Product used for unknown indication
     Dosage: DOSE FORM: CAPSULE, DELAYED RELEASE
  6. ACETAMINOPHEN [Suspect]
     Active Substance: ACETAMINOPHEN
     Indication: Migraine
     Dosage: ROUTE: UNKNOWN
  7. ACETAMINOPHEN [Suspect]
     Active Substance: ACETAMINOPHEN
     Dosage: DOSE FORM: NOT SPECIFIED, ROUTE: UNKNOWN
  8. ACETAMINOPHEN\TRAMADOL [Suspect]
     Active Substance: ACETAMINOPHEN\TRAMADOL
     Indication: Migraine
     Dosage: ROUTE: UNKNOWN
  9. AMITRIPTYLINE [Suspect]
     Active Substance: AMITRIPTYLINE
     Indication: Product used for unknown indication
     Dosage: ROUTE: UNKNOWN
  10. BOTULINUM TOXIN TYPE A [Suspect]
     Active Substance: BOTULINUM TOXIN TYPE A
     Indication: Product used for unknown indication
     Dosage: DOSE FORM: POWDER FOR SOLUTION, ROUTE: UNKNOWN
  11. CELECOXIB [Suspect]
     Active Substance: CELECOXIB
     Indication: Product used for unknown indication
     Dosage: ROUTE: UNKNOWN
  12. CODEINE [Suspect]
     Active Substance: CODEINE
     Indication: Migraine
     Dosage: DOSE FORM: NOT SPECIFIED, ROUTE: UNKNOWN
  13. DEMEROL [Suspect]
     Active Substance: MEPERIDINE HYDROCHLORIDE
     Indication: Product used for unknown indication
     Dosage: DOSE FORM: NOT SPECIFIED, ROUTE: UNKNOWN
  14. DICLOFENAC SODIUM [Suspect]
     Active Substance: DICLOFENAC SODIUM
     Indication: Product used for unknown indication
     Dosage: ROUTE: UNKNOWN
  15. DIHYDROERGOTAMINE MESYLATE [Suspect]
     Active Substance: DIHYDROERGOTAMINE MESYLATE
     Indication: Migraine
     Dosage: ROUTE: UNKNOWN
  16. DULOXETINE HYDROCHLORIDE [Suspect]
     Active Substance: DULOXETINE HYDROCHLORIDE
     Indication: Migraine
     Dosage: ROUTE: UNKNOWN
  17. DULOXETINE HYDROCHLORIDE [Suspect]
     Active Substance: DULOXETINE HYDROCHLORIDE
  18. ENDOCET [Suspect]
     Active Substance: ACETAMINOPHEN\OXYCODONE HYDROCHLORIDE
     Indication: Migraine
     Dosage: ROUTE: OTHER
  19. GABAPENTIN [Suspect]
     Active Substance: GABAPENTIN
     Indication: Product used for unknown indication
     Dosage: DOSE FORM: NOT SPECIFIED, ROUTE: UNKNOWN
  20. KETAMINE HYDROCHLORIDE [Suspect]
     Active Substance: KETAMINE HYDROCHLORIDE
     Indication: Migraine
     Dosage: ROUTE: UNKNOWN
  21. NORTRIPTYLINE [Suspect]
     Active Substance: NORTRIPTYLINE
     Indication: Product used for unknown indication
     Dosage: ROUTE: UNKNOWN
  22. NORTRIPTYLINE HYDROCHLORIDE [Suspect]
     Active Substance: NORTRIPTYLINE HYDROCHLORIDE
     Indication: Product used for unknown indication
     Dosage: ROUTE: OTHER
  23. ALMOTRIPTAN MALATE [Suspect]
     Active Substance: ALMOTRIPTAN MALATE
     Indication: Product used for unknown indication
     Dosage: ROUTE: UNKNOWN
  24. ACETAMINOPHEN\TRAMADOL [Suspect]
     Active Substance: ACETAMINOPHEN\TRAMADOL
     Indication: Migraine
  25. AMITRIPTYLINE [Suspect]
     Active Substance: AMITRIPTYLINE
     Indication: Product used for unknown indication
  26. BOTOX [Suspect]
     Active Substance: ONABOTULINUMTOXINA
     Indication: Product used for unknown indication
     Dosage: DOSE FORM: POWDER FOR SOLUTION INTRAMUSCULAR, ROUTE: UNKNOWN
  27. BOTOX [Suspect]
     Active Substance: ONABOTULINUMTOXINA
     Indication: Product used for unknown indication
  28. BOTOX [Suspect]
     Active Substance: ONABOTULINUMTOXINA
  29. BOTOX [Suspect]
     Active Substance: ONABOTULINUMTOXINA
  30. BOTOX [Suspect]
     Active Substance: ONABOTULINUMTOXINA
  31. BOTOX [Suspect]
     Active Substance: ONABOTULINUMTOXINA
  32. BOTOX [Suspect]
     Active Substance: ONABOTULINUMTOXINA
  33. BOTOX [Suspect]
     Active Substance: ONABOTULINUMTOXINA
  34. BOTOX [Suspect]
     Active Substance: ONABOTULINUMTOXINA
  35. BOTOX [Suspect]
     Active Substance: ONABOTULINUMTOXINA
  36. BOTOX [Suspect]
     Active Substance: ONABOTULINUMTOXINA
  37. BOTOX [Suspect]
     Active Substance: ONABOTULINUMTOXINA
  38. BOTOX [Suspect]
     Active Substance: ONABOTULINUMTOXINA
  39. BOTOX [Suspect]
     Active Substance: ONABOTULINUMTOXINA
  40. BOTOX [Suspect]
     Active Substance: ONABOTULINUMTOXINA
  41. BOTOX [Suspect]
     Active Substance: ONABOTULINUMTOXINA
  42. BOTOX [Suspect]
     Active Substance: ONABOTULINUMTOXINA
  43. BOTOX [Suspect]
     Active Substance: ONABOTULINUMTOXINA
  44. BOTOX [Suspect]
     Active Substance: ONABOTULINUMTOXINA
  45. BOTOX [Suspect]
     Active Substance: ONABOTULINUMTOXINA
  46. BOTOX [Suspect]
     Active Substance: ONABOTULINUMTOXINA
  47. BOTOX [Suspect]
     Active Substance: ONABOTULINUMTOXINA
  48. BOTOX [Suspect]
     Active Substance: ONABOTULINUMTOXINA
  49. BOTOX [Suspect]
     Active Substance: ONABOTULINUMTOXINA
  50. BOTOX [Suspect]
     Active Substance: ONABOTULINUMTOXINA
  51. BOTOX [Suspect]
     Active Substance: ONABOTULINUMTOXINA
  52. BOTOX [Suspect]
     Active Substance: ONABOTULINUMTOXINA
  53. BOTOX [Suspect]
     Active Substance: ONABOTULINUMTOXINA
  54. BOTOX [Suspect]
     Active Substance: ONABOTULINUMTOXINA
  55. BOTOX [Suspect]
     Active Substance: ONABOTULINUMTOXINA
  56. BOTOX [Suspect]
     Active Substance: ONABOTULINUMTOXINA
  57. BOTOX [Suspect]
     Active Substance: ONABOTULINUMTOXINA
  58. BOTOX [Suspect]
     Active Substance: ONABOTULINUMTOXINA
  59. BOTOX [Suspect]
     Active Substance: ONABOTULINUMTOXINA
  60. BOTOX [Suspect]
     Active Substance: ONABOTULINUMTOXINA
  61. BOTOX [Suspect]
     Active Substance: ONABOTULINUMTOXINA
  62. BOTOX [Suspect]
     Active Substance: ONABOTULINUMTOXINA
  63. BOTOX [Suspect]
     Active Substance: ONABOTULINUMTOXINA
  64. BOTOX [Suspect]
     Active Substance: ONABOTULINUMTOXINA
  65. BOTOX [Suspect]
     Active Substance: ONABOTULINUMTOXINA
  66. BOTOX [Suspect]
     Active Substance: ONABOTULINUMTOXINA
  67. BOTOX [Suspect]
     Active Substance: ONABOTULINUMTOXINA
  68. BOTOX [Suspect]
     Active Substance: ONABOTULINUMTOXINA
  69. BOTOX [Suspect]
     Active Substance: ONABOTULINUMTOXINA
  70. BOTOX [Suspect]
     Active Substance: ONABOTULINUMTOXINA
  71. BOTULINUM TOXIN TYPE A [Suspect]
     Active Substance: BOTULINUM TOXIN TYPE A
     Indication: Product used for unknown indication
     Dosage: ROUTE: OTHER
  72. CODEINE SULFATE [Suspect]
     Active Substance: CODEINE SULFATE
     Indication: Migraine
     Dosage: ROUTE: OTHER
  73. CODEINE SULFATE [Suspect]
     Active Substance: CODEINE SULFATE
     Dosage: ROUTE: OTHER
  74. ESOMEPRAZOLE [Suspect]
     Active Substance: ESOMEPRAZOLE
     Indication: Product used for unknown indication
     Dosage: ROUTE: OTHER
  75. HYDROMORPHONE [Suspect]
     Active Substance: HYDROMORPHONE
     Indication: Migraine
     Dosage: DOSE FORM: NOT SPECIFIED, ROUTE: UNKNOWN
  76. HYDROMORPHONE HYDROCHLORIDE [Suspect]
     Active Substance: HYDROMORPHONE HYDROCHLORIDE
     Indication: Product used for unknown indication
     Dosage: ROUTE: UNKNOWN
  77. MORPHINE SULFATE [Suspect]
     Active Substance: MORPHINE SULFATE
     Indication: Migraine
     Dosage: DOSE FORM: NOT SPECIFIED, ROUTE: UNKNOWN
  78. NAPROXEN [Suspect]
     Active Substance: NAPROXEN
     Indication: Product used for unknown indication
     Dosage: DOSE FORM: NOT SPECIFIED, ROUTE: OTHER
  79. NAPROXEN [Suspect]
     Active Substance: NAPROXEN
     Dosage: ROUTE: OTHER
  80. NAPROXEN [Suspect]
     Active Substance: NAPROXEN
     Dosage: ROUTE: OTHER
  81. NAPROXEN [Suspect]
     Active Substance: NAPROXEN
     Dosage: ROUTE: OTHER
  82. NAPROXEN [Suspect]
     Active Substance: NAPROXEN
     Dosage: ROUTE: OTHER
  83. NAPROXEN [Suspect]
     Active Substance: NAPROXEN
     Dosage: ROUTE: OTHER
  84. NAPROXEN [Suspect]
     Active Substance: NAPROXEN
     Dosage: ROUTE: OTHER
  85. NAPROXEN [Suspect]
     Active Substance: NAPROXEN
     Dosage: ROUTE: OTHER
  86. NAPROXEN [Suspect]
     Active Substance: NAPROXEN
     Dosage: ROUTE: OTHER
  87. NAPROXEN [Suspect]
     Active Substance: NAPROXEN
     Dosage: ROUTE: OTHER
  88. NAPROXEN [Suspect]
     Active Substance: NAPROXEN
     Dosage: ROUTE: OTHER
  89. NAPROXEN [Suspect]
     Active Substance: NAPROXEN
     Dosage: ROUTE: OTHER
  90. NAPROXEN [Suspect]
     Active Substance: NAPROXEN
     Dosage: ROUTE: OTHER
  91. ONDANSETRON HYDROCHLORIDE [Suspect]
     Active Substance: ONDANSETRON HYDROCHLORIDE
     Indication: Migraine
     Dosage: ROUTE: OTHER
  92. ONDANSETRON HYDROCHLORIDE [Suspect]
     Active Substance: ONDANSETRON HYDROCHLORIDE
     Dosage: ROUTE: OTHER
  93. TENORETIC [Suspect]
     Active Substance: ATENOLOL\CHLORTHALIDONE
     Indication: Product used for unknown indication
     Dosage: ROUTE: OTHER
  94. TENORETIC [Suspect]
     Active Substance: ATENOLOL\CHLORTHALIDONE
     Indication: Product used for unknown indication
     Dosage: ROUTE: OTHER
  95. TENORETIC [Suspect]
     Active Substance: ATENOLOL\CHLORTHALIDONE
     Dosage: ROUTE: OTHER
  96. TENORETIC [Suspect]
     Active Substance: ATENOLOL\CHLORTHALIDONE
     Dosage: ROUTE: OTHER
  97. TENORETIC [Suspect]
     Active Substance: ATENOLOL\CHLORTHALIDONE
     Dosage: ROUTE: OTHER
  98. TENORETIC [Suspect]
     Active Substance: ATENOLOL\CHLORTHALIDONE
     Dosage: ROUTE: OTHER
  99. TENORETIC [Suspect]
     Active Substance: ATENOLOL\CHLORTHALIDONE
     Dosage: ROUTE: OTHER
  100. TENORETIC [Suspect]
     Active Substance: ATENOLOL\CHLORTHALIDONE
     Dosage: ROUTE: OTHER
  101. TENORETIC [Suspect]
     Active Substance: ATENOLOL\CHLORTHALIDONE
     Dosage: ROUTE: OTHER
  102. TENORETIC [Suspect]
     Active Substance: ATENOLOL\CHLORTHALIDONE
     Dosage: ROUTE: OTHER
  103. TENORETIC [Suspect]
     Active Substance: ATENOLOL\CHLORTHALIDONE
     Dosage: ROUTE: OTHER
  104. TENORETIC [Suspect]
     Active Substance: ATENOLOL\CHLORTHALIDONE
     Dosage: ROUTE: OTHER
  105. TENORETIC [Suspect]
     Active Substance: ATENOLOL\CHLORTHALIDONE
     Dosage: ROUTE: OTHER
  106. TENORETIC [Suspect]
     Active Substance: ATENOLOL\CHLORTHALIDONE
     Dosage: ROUTE: OTHER
  107. TENORETIC [Suspect]
     Active Substance: ATENOLOL\CHLORTHALIDONE
     Dosage: ROUTE: OTHER
  108. TENORETIC [Suspect]
     Active Substance: ATENOLOL\CHLORTHALIDONE
     Dosage: ROUTE: OTHER
  109. TENORETIC [Suspect]
     Active Substance: ATENOLOL\CHLORTHALIDONE
     Dosage: ROUTE: OTHER
  110. TENORETIC [Suspect]
     Active Substance: ATENOLOL\CHLORTHALIDONE
     Dosage: ROUTE: OTHER
  111. TENORETIC [Suspect]
     Active Substance: ATENOLOL\CHLORTHALIDONE
     Dosage: ROUTE: OTHER
  112. TENORETIC [Suspect]
     Active Substance: ATENOLOL\CHLORTHALIDONE
     Dosage: ROUTE: OTHER
  113. TENORETIC [Suspect]
     Active Substance: ATENOLOL\CHLORTHALIDONE
     Dosage: ROUTE: OTHER
  114. TENORETIC [Suspect]
     Active Substance: ATENOLOL\CHLORTHALIDONE
     Dosage: ROUTE: OTHER
  115. TENORETIC [Suspect]
     Active Substance: ATENOLOL\CHLORTHALIDONE
     Dosage: ROUTE: OTHER
  116. TENORETIC [Suspect]
     Active Substance: ATENOLOL\CHLORTHALIDONE
     Dosage: ROUTE: OTHER
  117. TENORETIC [Suspect]
     Active Substance: ATENOLOL\CHLORTHALIDONE
     Dosage: ROUTE: OTHER
  118. TENORETIC [Suspect]
     Active Substance: ATENOLOL\CHLORTHALIDONE
     Dosage: ROUTE: OTHER
  119. TENORETIC [Suspect]
     Active Substance: ATENOLOL\CHLORTHALIDONE
     Dosage: ROUTE: OTHER
  120. TENORETIC [Suspect]
     Active Substance: ATENOLOL\CHLORTHALIDONE
     Dosage: ROUTE: OTHER
  121. TENORETIC [Suspect]
     Active Substance: ATENOLOL\CHLORTHALIDONE
     Dosage: ROUTE: OTHER
  122. TENORETIC [Suspect]
     Active Substance: ATENOLOL\CHLORTHALIDONE
     Dosage: ROUTE: OTHER
  123. TENORETIC [Suspect]
     Active Substance: ATENOLOL\CHLORTHALIDONE
     Dosage: ROUTE: OTHER
  124. TENORETIC [Suspect]
     Active Substance: ATENOLOL\CHLORTHALIDONE
     Dosage: ROUTE: OTHER
  125. TENORETIC [Suspect]
     Active Substance: ATENOLOL\CHLORTHALIDONE
     Dosage: ROUTE: OTHER
  126. TENORETIC [Suspect]
     Active Substance: ATENOLOL\CHLORTHALIDONE
     Dosage: ROUTE: OTHER
  127. TENORETIC [Suspect]
     Active Substance: ATENOLOL\CHLORTHALIDONE
     Dosage: ROUTE: OTHER
  128. TENORETIC [Suspect]
     Active Substance: ATENOLOL\CHLORTHALIDONE
     Dosage: ROUTE: OTHER
  129. TENORETIC [Suspect]
     Active Substance: ATENOLOL\CHLORTHALIDONE
     Dosage: ROUTE: OTHER
  130. TENORETIC [Suspect]
     Active Substance: ATENOLOL\CHLORTHALIDONE
     Dosage: ROUTE: OTHER
  131. TENORETIC [Suspect]
     Active Substance: ATENOLOL\CHLORTHALIDONE
     Dosage: ROUTE: OTHER
  132. TENORETIC [Suspect]
     Active Substance: ATENOLOL\CHLORTHALIDONE
     Dosage: ROUTE: OTHER
  133. TENORETIC [Suspect]
     Active Substance: ATENOLOL\CHLORTHALIDONE
     Dosage: ROUTE: OTHER
  134. TENORETIC [Suspect]
     Active Substance: ATENOLOL\CHLORTHALIDONE
     Dosage: ROUTE: OTHER
  135. TENORETIC [Suspect]
     Active Substance: ATENOLOL\CHLORTHALIDONE
     Dosage: ROUTE: OTHER
  136. TENORETIC [Suspect]
     Active Substance: ATENOLOL\CHLORTHALIDONE
     Dosage: ROUTE: OTHER
  137. TENORETIC [Suspect]
     Active Substance: ATENOLOL\CHLORTHALIDONE
     Dosage: ROUTE: OTHER
  138. TENORETIC [Suspect]
     Active Substance: ATENOLOL\CHLORTHALIDONE
     Dosage: ROUTE: OTHER
  139. TENORETIC [Suspect]
     Active Substance: ATENOLOL\CHLORTHALIDONE
     Dosage: ROUTE: OTHER
  140. TENORETIC [Suspect]
     Active Substance: ATENOLOL\CHLORTHALIDONE
     Dosage: ROUTE: OTHER
  141. ACETAMINOPHEN\TRAMADOL [Suspect]
     Active Substance: ACETAMINOPHEN\TRAMADOL
     Indication: Migraine
     Dosage: ROUTE: UNKNOWN
  142. TORADOL [Suspect]
     Active Substance: KETOROLAC TROMETHAMINE
     Indication: Migraine
     Dosage: DOSE FORM: NOT SPECIFIED, ROUTE: UNKNOWN
  143. TRAMADOL HYDROCHLORIDE [Suspect]
     Active Substance: TRAMADOL HYDROCHLORIDE
     Indication: Migraine
     Dosage: DOSE FORM: NOT SPECIFIED, ROUTE: UNKNOWN
  144. TRIAMCINOLONE ACETONIDE [Suspect]
     Active Substance: TRIAMCINOLONE ACETONIDE
     Indication: Migraine
     Dosage: DOSE FORM: SUSPENSION INTRA- ARTICULAR, ROUTE: UNKNOWN
  145. VENLAFAXINE HYDROCHLORIDE [Suspect]
     Active Substance: VENLAFAXINE HYDROCHLORIDE
     Indication: Migraine
     Dosage: ROUTE: UNKNOWN
  146. PROPRANOLOL [Suspect]
     Active Substance: PROPRANOLOL HYDROCHLORIDE
     Indication: Migraine
     Dosage: DOSE FORM: NOT SPECIFIED, ROUTE: UNKNOWN
  147. OXYCODONE HYDROCHLORIDE [Suspect]
     Active Substance: OXYCODONE HYDROCHLORIDE
     Indication: Migraine
     Dosage: DOSE FORM: NOT SPECIFIED, ROUTE: OTHER
  148. RIZATRIPTAN BENZOATE [Suspect]
     Active Substance: RIZATRIPTAN BENZOATE
     Indication: Product used for unknown indication
     Dosage: ROUTE: UNKNOWN
  149. ACETAMINOPHEN\TRAMADOL [Suspect]
     Active Substance: ACETAMINOPHEN\TRAMADOL
     Indication: Migraine
     Dosage: ROUTE: UNKNOWN

REACTIONS (8)
  - Nephrolithiasis [Unknown]
  - Nightmare [Unknown]
  - Drug ineffective [Unknown]
  - Nausea [Unknown]
  - Hyperhidrosis [Unknown]
  - Product use in unapproved indication [Unknown]
  - Off label use [Unknown]
  - Sedation [Unknown]
